FAERS Safety Report 23198706 (Version 1)
Quarter: 2023Q4

REPORT INFORMATION
  Report Type: Spontaneous
  Country: CZ (occurrence: CZ)
  Receive Date: 20231117
  Receipt Date: 20231117
  Transmission Date: 20240110
  Serious: Yes (Other)
  Sender: FDA-Public Use
  Company Number: CZ-JAZZ PHARMACEUTICALS-2023-CZ-022708

PATIENT
  Age: 44 Year
  Sex: Male

DRUGS (1)
  1. VYXEOS [Suspect]
     Active Substance: CYTARABINE\DAUNORUBICIN
     Indication: Acute myeloid leukaemia
     Dosage: 44 MILLIGRAM/SQ. METER, ON DAYS 1, 3 AND 5
     Dates: start: 20220804

REACTIONS (4)
  - Febrile neutropenia [Unknown]
  - Delayed haematopoietic reconstitution [Unknown]
  - Rash [Unknown]
  - Staphylococcus test positive [Unknown]
